FAERS Safety Report 18945857 (Version 5)
Quarter: 2021Q2

REPORT INFORMATION
  Report Type: Report from Study
  Country: US (occurrence: US)
  Receive Date: 20210226
  Receipt Date: 20210622
  Transmission Date: 20210717
  Serious: No
  Sender: FDA-Public Use
  Company Number: NVSC2021US037363

PATIENT
  Age: 8 Month
  Sex: Female

DRUGS (2)
  1. ZOLGENSMA [Suspect]
     Active Substance: ONASEMNOGENE ABEPARVOVEC-XIOI
     Indication: SPINAL MUSCULAR ATROPHY
     Dosage: UNK UNK, ONCE/SINGLE (7.6?8.0 KG KIT)
     Route: 042
     Dates: start: 20210204, end: 20210204
  2. PREDNISOLONE. [Concomitant]
     Active Substance: PREDNISOLONE
     Indication: SPINAL MUSCULAR ATROPHY
     Dosage: 1 MG, QOD
     Route: 048
     Dates: start: 20210203, end: 20210408

REACTIONS (5)
  - Full blood count decreased [Unknown]
  - Alanine aminotransferase increased [Recovered/Resolved]
  - Hepatic enzyme increased [Unknown]
  - White blood cell count decreased [Not Recovered/Not Resolved]
  - Aspartate aminotransferase increased [Recovered/Resolved]

NARRATIVE: CASE EVENT DATE: 20210211
